FAERS Safety Report 15964275 (Version 3)
Quarter: 2020Q2

REPORT INFORMATION
  Report Type: Spontaneous
  Country: DE (occurrence: DE)
  Receive Date: 20190214
  Receipt Date: 20200615
  Transmission Date: 20200713
  Serious: Yes (Hospitalization, Other)
  Sender: FDA-Public Use
  Company Number: DE-ABBVIE-19K-062-2666551-00

PATIENT
  Age: 66 Year
  Sex: Male
  Weight: 183 kg

DRUGS (20)
  1. VENCLYXTO [Suspect]
     Active Substance: VENETOCLAX
     Indication: CHRONIC LYMPHOCYTIC LEUKAEMIA
  2. METFORMIN [Concomitant]
     Active Substance: METFORMIN HYDROCHLORIDE
     Indication: PRODUCT USED FOR UNKNOWN INDICATION
     Dosage: RIGHT AFTER MEALS
  3. MAGNESIUMCITRAT [Concomitant]
     Indication: PRODUCT USED FOR UNKNOWN INDICATION
     Dosage: 300-400 MG
  4. VENCLYXTO [Suspect]
     Active Substance: VENETOCLAX
     Indication: CHRONIC LYMPHOCYTIC LEUKAEMIA
     Route: 048
     Dates: start: 201809, end: 20190213
  5. L-THYROX [Concomitant]
     Active Substance: LEVOTHYROXINE SODIUM
  6. GABAPENTIN. [Concomitant]
     Active Substance: GABAPENTIN
     Indication: NERVOUS SYSTEM DISORDER
     Dosage: 300 MG ONCE IN MORNING, ONCE IN NOON, ONCE IN NIGHT
  7. ADENURIC [Concomitant]
     Active Substance: FEBUXOSTAT
     Indication: BLOOD URIC ACID ABNORMAL
     Dosage: 120 MG STRENGTH ONCE IN MORNING
  8. REPAGLINIDA [Concomitant]
     Active Substance: REPAGLINIDE
     Indication: PRODUCT USED FOR UNKNOWN INDICATION
     Dosage: 0.5-1 MG 10 -15 MINUTES BEFORE MEALS 3 TIMES A DAY
  9. EXFORGE HCT [Concomitant]
     Active Substance: AMLODIPINE BESYLATE\HYDROCHLOROTHIAZIDE\VALSARTAN
     Indication: BLOOD PRESSURE ABNORMAL
     Dosage: 10/160 12.5 MG?ONCE IN MORNING
  10. VALSARTAN HCT [Concomitant]
     Active Substance: HYDROCHLOROTHIAZIDE\VALSARTAN
     Indication: PRODUCT USED FOR UNKNOWN INDICATION
     Dosage: 160/12.5 MG
  11. ELIQUIS [Concomitant]
     Active Substance: APIXABAN
     Dosage: 5 MG STRENGTH ONCE IN MORNING
  12. ELIQUIS [Concomitant]
     Active Substance: APIXABAN
     Indication: ANTICOAGULANT THERAPY
     Dosage: 5 MG STRENGTH ONCE IN MORNING
  13. DEKRISTOL [Concomitant]
     Active Substance: CHOLECALCIFEROL
     Indication: PRODUCT USED FOR UNKNOWN INDICATION
     Dosage: ONCE IN MORNING
  14. REPAGLINIDA [Concomitant]
     Active Substance: REPAGLINIDE
     Dosage: ONCE A DAY, 0.5MG AS REQUIRED AT NIGHT
  15. L-THYROX [Concomitant]
     Active Substance: LEVOTHYROXINE SODIUM
     Indication: PRODUCT USED FOR UNKNOWN INDICATION
     Dosage: 1 1 / 5-0-0 30 MINUTES BEFORE THE MEAL
  16. HUMINSULIN BASAL [Concomitant]
     Active Substance: INSULIN NOS
     Indication: PRODUCT USED FOR UNKNOWN INDICATION
     Dosage: AT 22-23.00
  17. ADENURIC [Concomitant]
     Active Substance: FEBUXOSTAT
     Indication: GOUT
  18. SEVELAMER [Concomitant]
     Active Substance: SEVELAMER
     Indication: DRUG THERAPY
     Dosage: 800 MG STRENGTH ONCE IN MORNING AND ONCE IN NIGHT
  19. FINASTERID [Concomitant]
     Active Substance: FINASTERIDE
     Indication: PROSTATIC DISORDER
     Dosage: 5 MG STRENGTH ONCE IN MORNING
  20. DEKRISTOL [Concomitant]
     Active Substance: CHOLECALCIFEROL

REACTIONS (8)
  - Visual field defect [Unknown]
  - Hemianopia homonymous [Not Recovered/Not Resolved]
  - Gait disturbance [Unknown]
  - Visual impairment [Unknown]
  - Encephalopathy [Not Recovered/Not Resolved]
  - Cerebrovascular accident [Unknown]
  - Impaired driving ability [Not Recovered/Not Resolved]
  - Cerebral atrophy [Unknown]

NARRATIVE: CASE EVENT DATE: 201812
